FAERS Safety Report 6263710-X (Version None)
Quarter: 2009Q3

REPORT INFORMATION
  Report Type: 
  Country: None (occurrence: None)
  Receive Date: 20090710
  Receipt Date: 20090706
  Transmission Date: 20100115
  Serious: Yes (Death, Hospitalization)
  Sender: FDA-Public Use
  Company Number: US-AMGEN-US353773

PATIENT
  Sex: Male

DRUGS (3)
  1. NPLATE [Suspect]
     Indication: IDIOPATHIC THROMBOCYTOPENIC PURPURA
     Route: 058
     Dates: start: 20090416
  2. LISINOPRIL [Concomitant]
     Route: 065
     Dates: start: 20080804
  3. PREDNISONE TAB [Concomitant]
     Route: 065
     Dates: start: 20081020

REACTIONS (2)
  - DEATH [None]
  - DEHYDRATION [None]
